FAERS Safety Report 25771739 (Version 2)
Quarter: 2025Q4

REPORT INFORMATION
  Report Type: Report from Study
  Country: JP (occurrence: JP)
  Receive Date: 20250908
  Receipt Date: 20251021
  Transmission Date: 20260118
  Serious: Yes (Death, Other)
  Sender: ASTELLAS
  Company Number: JP-ASTELLAS-2025-AER-048475

PATIENT
  Age: 66 Year
  Sex: Male

DRUGS (1)
  1. XOSPATA [Suspect]
     Active Substance: GILTERITINIB
     Indication: Acute myeloid leukaemia recurrent
     Route: 065
     Dates: start: 20230420, end: 20240401

REACTIONS (6)
  - Cerebral haemorrhage [Fatal]
  - Sepsis [Fatal]
  - Acute myeloid leukaemia recurrent [Fatal]
  - Renal impairment [Fatal]
  - Inflammation [Fatal]
  - Hepatic enzyme increased [Fatal]

NARRATIVE: CASE EVENT DATE: 20240401
